FAERS Safety Report 15057240 (Version 1)
Quarter: 2018Q2

REPORT INFORMATION
  Report Type: Spontaneous
  Country: US (occurrence: US)
  Receive Date: 20180604
  Receipt Date: 20180604
  Transmission Date: 20180711
  Serious: Yes (Death)
  Sender: FDA-Public Use
  Company Number: None

PATIENT
  Age: 70 Year
  Sex: Female

DRUGS (20)
  1. CARVEDOLOL [Concomitant]
  2. NATEGLINIDE. [Concomitant]
     Active Substance: NATEGLINIDE
  3. TEMAZEPAM. [Concomitant]
     Active Substance: TEMAZEPAM
  4. FAMOTIDINE. [Concomitant]
     Active Substance: FAMOTIDINE
  5. VITAMIN B [Concomitant]
     Active Substance: VITAMIN B
  6. ASPIRIN. [Concomitant]
     Active Substance: ASPIRIN
  7. OXYCONTIN [Concomitant]
     Active Substance: OXYCODONE HYDROCHLORIDE
  8. FUROSEMIDE. [Concomitant]
     Active Substance: FUROSEMIDE
  9. OXYCODONE [Concomitant]
     Active Substance: OXYCODONE
  10. PANTASA [Concomitant]
  11. IMATINIB MES [Suspect]
     Active Substance: IMATINIB MESYLATE
     Indication: ABDOMINAL NEOPLASM
     Route: 048
     Dates: start: 20170718
  12. PROCRIT [Concomitant]
     Active Substance: ERYTHROPOIETIN
  13. QUETIAPINE. [Concomitant]
     Active Substance: QUETIAPINE
  14. AMIODARONE [Concomitant]
     Active Substance: AMIODARONE
  15. DONEPZIL [Concomitant]
  16. PROMETHAZINE [Concomitant]
     Active Substance: PROMETHAZINE\PROMETHAZINE HYDROCHLORIDE
  17. EXEMESTANE. [Concomitant]
     Active Substance: EXEMESTANE
  18. SPIRONOLACTONE. [Concomitant]
     Active Substance: SPIRONOLACTONE
  19. ACETAMINOPHEN. [Concomitant]
     Active Substance: ACETAMINOPHEN
  20. URSODIOL. [Concomitant]
     Active Substance: URSODIOL

REACTIONS (1)
  - Death [None]
